FAERS Safety Report 8276116-9 (Version None)
Quarter: 2012Q2

REPORT INFORMATION
  Report Type: 
  Country: None (occurrence: None)
  Receive Date: 20120412
  Receipt Date: 20120411
  Transmission Date: 20120825
  Serious: Yes (Other)
  Sender: FDA-Public Use
  Company Number: JP-BAYER-201013971BYL

PATIENT
  Age: 79 Year
  Sex: Female
  Weight: 38.5 kg

DRUGS (2)
  1. NEXAVAR [Suspect]
     Dosage: 200 MG (DAILY DOSE), , ORAL
     Route: 048
     Dates: start: 20100730, end: 20100730
  2. NEXAVAR [Suspect]
     Indication: HEPATIC NEOPLASM MALIGNANT
     Route: 048
     Dates: start: 20100628

REACTIONS (2)
  - LARYNGEAL OEDEMA [None]
  - PALMAR-PLANTAR ERYTHRODYSAESTHESIA SYNDROME [None]
